FAERS Safety Report 5404945-5 (Version None)
Quarter: 2007Q3

REPORT INFORMATION
  Report Type: 
  Country: None (occurrence: None)
  Receive Date: 20070801
  Receipt Date: 20070720
  Transmission Date: 20080115
  Serious: Yes (Other)
  Sender: FDA-Public Use
  Company Number: DSA_29876_2007

PATIENT
  Sex: Male
  Weight: 83.4619 kg

DRUGS (5)
  1. CARDIZEM CD [Suspect]
     Indication: MYOCARDIAL INFARCTION
     Dosage: (180 MG QD ORAL)
     Route: 048
     Dates: start: 19890101, end: 20060831
  2. CARDIZEM CD [Suspect]
     Indication: MYOCARDIAL INFARCTION
     Dosage: (120 MG QD ORAL)
     Route: 048
     Dates: start: 20061101
  3. COUMADIN [Concomitant]
  4. ASPIRIN [Concomitant]
  5. MULTIVITAMIN [Concomitant]

REACTIONS (5)
  - CEREBROVASCULAR ACCIDENT [None]
  - FLUSHING [None]
  - HYPERHIDROSIS [None]
  - HYPOTENSION [None]
  - PHARMACEUTICAL PRODUCT COMPLAINT [None]
